FAERS Safety Report 7796545-7 (Version None)
Quarter: 2011Q4

REPORT INFORMATION
  Report Type: 
  Country: None (occurrence: None)
  Receive Date: 20111005
  Receipt Date: 20110926
  Transmission Date: 20120403
  Serious: Yes (Hospitalization, Other)
  Sender: FDA-Public Use
  Company Number: JP-SHIRE-ALL1-2011-03584

PATIENT
  Sex: Male

DRUGS (1)
  1. AGALSIDASE ALFA [Suspect]
     Indication: FABRY'S DISEASE
     Dosage: 7 MG, 1X/2WKS
     Route: 041
     Dates: start: 20110119

REACTIONS (3)
  - CELLULITIS [None]
  - COLITIS ISCHAEMIC [None]
  - GANGRENE [None]
